FAERS Safety Report 7785343-6 (Version None)
Quarter: 2011Q3

REPORT INFORMATION
  Report Type: 
  Country: None (occurrence: None)
  Receive Date: 20110929
  Receipt Date: 20110926
  Transmission Date: 20111222
  Serious: No
  Sender: FDA-Public Use
  Company Number: US-PFIZER INC-2011229024

PATIENT
  Sex: Male

DRUGS (2)
  1. IBUPROFEN (ADVIL) [Suspect]
     Dosage: 2 TABLETS, UNK
     Route: 048
  2. ZANTAC [Suspect]
     Dosage: 150 MG, UNK
     Route: 048

REACTIONS (1)
  - DYSPNOEA [None]
